FAERS Safety Report 4685628-6 (Version None)
Quarter: 2005Q2

REPORT INFORMATION
  Report Type: 
  Country: None (occurrence: None)
  Receive Date: 20050608
  Receipt Date: 20050531
  Transmission Date: 20051028
  Serious: Yes (Hospitalization)
  Sender: FDA-Public Use
  Company Number: 208108

PATIENT
  Age: 39 Year
  Sex: Female
  Weight: 100 kg

DRUGS (5)
  1. OMALIZUMAB OR PLACEBO (CODE NOT BROKEN) (OMALIZUMAB)PWDR + SOLVENT, IN [Suspect]
     Indication: ASTHMA
     Dates: start: 20030314, end: 20030815
  2. SALMETEROL (SALMETEROL) [Concomitant]
  3. SALBUTAMOL (ALBUTEROL SULFATE, ALBUTEROL) [Concomitant]
  4. TEMAZEPAM [Concomitant]
  5. SERETIDE DISKUS (FLUTICASONE PROPIONATE, SALMETEROL XINAFOATE) [Concomitant]

REACTIONS (4)
  - FATIGUE [None]
  - MALAISE [None]
  - PULMONARY EOSINOPHILIA [None]
  - SARCOIDOSIS [None]
